FAERS Safety Report 10003449 (Version 1)
Quarter: 2014Q1

REPORT INFORMATION
  Report Type: Spontaneous
  Country: CN (occurrence: CN)
  Receive Date: 20140312
  Receipt Date: 20140312
  Transmission Date: 20141002
  Serious: Yes (Other)
  Sender: FDA-Public Use
  Company Number: PHHY2014CN026567

PATIENT
  Age: 32 Year
  Sex: Female

DRUGS (4)
  1. CEFTRIAXONE [Suspect]
     Indication: LISTERIOSIS
  2. CLARITHROMYCIN [Suspect]
     Indication: LISTERIOSIS
  3. AMOXICILLIN+CLAVULANATE [Suspect]
     Indication: LISTERIOSIS
  4. CEFMETAZOLE [Suspect]
     Indication: LISTERIOSIS

REACTIONS (3)
  - Pyelonephritis [Recovered/Resolved]
  - Maternal exposure during pregnancy [Unknown]
  - Normal newborn [Unknown]
